FAERS Safety Report 7823235-4 (Version None)
Quarter: 2011Q4

REPORT INFORMATION
  Report Type: 
  Country: None (occurrence: None)
  Receive Date: 20111019
  Receipt Date: 20091202
  Transmission Date: 20120403
  Serious: No
  Sender: FDA-Public Use
  Company Number: 2009BI039723

PATIENT
  Age: 27 Year
  Sex: Female

DRUGS (3)
  1. FLOMAX [Concomitant]
     Indication: PRODUCT USED FOR UNKNOWN INDICATION
  2. AMPYRA [Concomitant]
     Indication: PRODUCT USED FOR UNKNOWN INDICATION
  3. TYSABRI [Suspect]
     Indication: MULTIPLE SCLEROSIS
     Route: 042
     Dates: start: 20090416

REACTIONS (6)
  - DEPRESSION [None]
  - MULTIPLE SCLEROSIS [None]
  - PARAESTHESIA [None]
  - NEUROGENIC BLADDER [None]
  - GAIT DISTURBANCE [None]
  - URINARY INCONTINENCE [None]
